FAERS Safety Report 4736543-0 (Version None)
Quarter: 2005Q3

REPORT INFORMATION
  Report Type: 
  Country: None (occurrence: None)
  Receive Date: 20050802
  Receipt Date: 20050503
  Transmission Date: 20060218
  Serious: Yes (Death, Other)
  Sender: FDA-Public Use
  Company Number: 2005039793

PATIENT
  Sex: Male

DRUGS (7)
  1. ATARAX [Suspect]
     Indication: ILL-DEFINED DISORDER
     Dosage: (100 MG), INTRAVENOUS
     Route: 042
     Dates: start: 20041219, end: 20041219
  2. ERYTHROMYCIN [Suspect]
     Indication: ILL-DEFINED DISORDER
     Dosage: 1000 GRAM, ORAL
     Route: 048
     Dates: start: 20041219, end: 20041219
  3. SUFENTANIL CITRATE [Suspect]
     Indication: ILL-DEFINED DISORDER
     Dates: start: 20041219, end: 20041219
  4. ROPIVACAINE (ROPIVACAINE) [Suspect]
     Indication: ILL-DEFINED DISORDER
     Dates: start: 20041219, end: 20041219
  5. NALBUPHINE [Suspect]
     Indication: ILL-DEFINED DISORDER
     Dosage: (20 MG), INTRAVENOUS
     Route: 042
     Dates: start: 20041219, end: 20041219
  6. ACETAMINOPHEN [Suspect]
     Indication: ILL-DEFINED DISORDER
     Dosage: (1 GRAM), INTRAVENOUS
     Route: 042
     Dates: start: 20041219, end: 20041219
  7. OXYTOCIN 10 USP UNITS IN DEXTROSE 5% [Concomitant]

REACTIONS (5)
  - ACIDOSIS [None]
  - C-REACTIVE PROTEIN INCREASED [None]
  - DEATH NEONATAL [None]
  - DRUG EXPOSURE DURING PREGNANCY [None]
  - LEUKOCYTOSIS [None]
